FAERS Safety Report 7427651-4 (Version None)
Quarter: 2011Q1

REPORT INFORMATION
  Report Type: 
  Country: None (occurrence: None)
  Receive Date: 20110302
  Receipt Date: 20110121
  Transmission Date: 20110831
  Serious: No
  Sender: FDA-Public Use
  Company Number: 026132

PATIENT
  Sex: Female

DRUGS (7)
  1. ZETIA [Concomitant]
  2. LISINOPRIL [Concomitant]
  3. CIMZIA [Suspect]
     Indication: RHEUMATOID ARTHRITIS
     Dosage: (2 SYRINGES SUBCUTANEOUS)
     Route: 058
     Dates: start: 20100324
  4. FOLIC ACID [Concomitant]
  5. VALIUM [Concomitant]
  6. METHOTREXATE [Concomitant]
  7. VICODIN [Concomitant]

REACTIONS (1)
  - RASH ERYTHEMATOUS [None]
